FAERS Safety Report 15463316 (Version 2)
Quarter: 2018Q4

REPORT INFORMATION
  Report Type: Report from Study
  Country: ES (occurrence: ES)
  Receive Date: 20181004
  Receipt Date: 20181008
  Transmission Date: 20190204
  Serious: Yes (Hospitalization)
  Sender: FDA-Public Use
  Company Number: ES-PURDUE-GBR-2018-0059748

PATIENT
  Age: 55 Year
  Sex: Female

DRUGS (29)
  1. MORPHINE SULFATE. [Suspect]
     Active Substance: MORPHINE SULFATE
     Dosage: 5 MG, UNK
     Route: 048
  2. FENTANYL. [Suspect]
     Active Substance: FENTANYL
     Dosage: 25 UG/H
     Route: 065
  3. FENTANYL. [Suspect]
     Active Substance: FENTANYL
     Indication: BREAKTHROUGH PAIN
     Dosage: 400 UG, 2 IN THE MORNING AND 1 OR 2 IN THE EVENING/NIGHT
     Route: 045
  4. CISPLATIN W/PEMETREXED [Suspect]
     Active Substance: CISPLATIN\PEMETREXED
     Indication: NON-SMALL CELL LUNG CANCER METASTATIC
     Dosage: UNKNOWN
     Route: 065
     Dates: start: 201702, end: 2017
  5. GRANISETRON [Concomitant]
     Active Substance: GRANISETRON
     Indication: PRODUCT USED FOR UNKNOWN INDICATION
     Dosage: 1 MG, Q12H
     Route: 065
     Dates: start: 201711
  6. MORPHINE SULFATE. [Suspect]
     Active Substance: MORPHINE SULFATE
     Dosage: 20 MG, EVERY 4 HOURS IF SHE PRESENTED BREAKTHROUGH PAIN
     Route: 048
     Dates: start: 2017, end: 2017
  7. BROMAZEPAM [Concomitant]
     Active Substance: BROMAZEPAM
     Indication: PRODUCT USED FOR UNKNOWN INDICATION
     Dosage: 1.5 MG/24 H
     Route: 065
     Dates: start: 201711
  8. OLANZAPINE. [Concomitant]
     Active Substance: OLANZAPINE
     Indication: PRURITUS
     Dosage: UNKNOWN
     Route: 065
  9. PEMBROLIZUMAB. [Suspect]
     Active Substance: PEMBROLIZUMAB
     Indication: NON-SMALL CELL LUNG CANCER METASTATIC
     Dosage: UNKNOWN
     Route: 065
  10. FENTANYL. [Suspect]
     Active Substance: FENTANYL
     Indication: ANALGESIC THERAPY
     Dosage: 150 UG, EVERY 72 H
     Route: 065
  11. CARBOPLATIN. [Suspect]
     Active Substance: CARBOPLATIN
     Indication: NON-SMALL CELL LUNG CANCER METASTATIC
     Dosage: UNKNOWN
     Route: 065
     Dates: start: 201711
  12. MORPHINE SULFATE. [Suspect]
     Active Substance: MORPHINE SULFATE
     Indication: BREAKTHROUGH PAIN
     Dosage: 200 MG IN THE MORNING, 160 MG IN THE EVENING
     Route: 048
     Dates: start: 201711, end: 201711
  13. VINORELBINE [Suspect]
     Active Substance: VINORELBINE\VINORELBINE TARTRATE
     Indication: NON-SMALL CELL LUNG CANCER METASTATIC
     Dosage: UNKNOWN
     Route: 065
     Dates: start: 201711
  14. MAGNESIUM HYDROXIDE. [Concomitant]
     Active Substance: MAGNESIUM HYDROXIDE
     Indication: PRODUCT USED FOR UNKNOWN INDICATION
     Dosage: BETWEEN 1 AND 3 SACHETS PER DAY
     Route: 065
     Dates: start: 201711
  15. MORPHINE SULFATE. [Suspect]
     Active Substance: MORPHINE SULFATE
     Dosage: CONTINUOUS INFUSION PUMP
     Route: 058
  16. MORPHINE SULFATE. [Suspect]
     Active Substance: MORPHINE SULFATE
     Dosage: 260 MG, Q12H
     Route: 048
     Dates: start: 201711, end: 201711
  17. MORPHINE SULFATE. [Suspect]
     Active Substance: MORPHINE SULFATE
     Dosage: MORE THAN 5 DOSES OF 20 MG PER DAY
     Route: 048
  18. FENTANYL. [Suspect]
     Active Substance: FENTANYL
     Dosage: 400 UG, PER DOSE
     Route: 045
     Dates: start: 201711
  19. FENTANYL. [Suspect]
     Active Substance: FENTANYL
     Dosage: 200 UG, RESCUE
     Route: 060
  20. IBUPROFEN. [Concomitant]
     Active Substance: IBUPROFEN
     Indication: PAIN
     Dosage: 600 MG, Q8H
     Route: 065
     Dates: start: 201711
  21. MORPHINE SULFATE. [Suspect]
     Active Substance: MORPHINE SULFATE
     Dosage: 300 MG, Q12H
     Route: 048
     Dates: start: 201711, end: 2017
  22. MORPHINE SULFATE. [Suspect]
     Active Substance: MORPHINE SULFATE
     Dosage: 200 MG, Q12H
     Route: 048
     Dates: start: 201711, end: 201711
  23. MORPHINE SULFATE. [Suspect]
     Active Substance: MORPHINE SULFATE
     Dosage: 160 MG, Q12H
     Route: 048
     Dates: start: 201711, end: 201711
  24. MORPHINE SULFATE. [Suspect]
     Active Substance: MORPHINE SULFATE
     Dosage: 30 MG, IF FENTANYL WAS INSUFFICIENT
     Route: 058
     Dates: start: 201711, end: 2017
  25. FENTANYL. [Suspect]
     Active Substance: FENTANYL
     Indication: BREAKTHROUGH PAIN
     Dosage: UP TO 600 UG, RESCUES
     Route: 060
  26. ATEZOLIZUMAB. [Suspect]
     Active Substance: ATEZOLIZUMAB
     Indication: NON-SMALL CELL LUNG CANCER METASTATIC
     Dosage: UNKNOWN
     Route: 065
  27. DIPIRONE [Concomitant]
     Active Substance: METAMIZOLE SODIUM
     Indication: PRODUCT USED FOR UNKNOWN INDICATION
     Dosage: 1.15 G, Q8H
     Route: 065
     Dates: end: 201711
  28. PREGABALIN. [Concomitant]
     Active Substance: PREGABALIN
     Indication: PAIN MANAGEMENT
     Dosage: 300 MG, Q12H
     Route: 065
     Dates: start: 201711
  29. OMEPRAZOLE. [Concomitant]
     Active Substance: OMEPRAZOLE
     Indication: PRODUCT USED FOR UNKNOWN INDICATION
     Dosage: 20 MG/24 H
     Route: 065

REACTIONS (10)
  - Insomnia [Unknown]
  - Skin plaque [Unknown]
  - Pneumonitis [Unknown]
  - Cognitive disorder [Unknown]
  - Anxiety [Unknown]
  - Dry mouth [Unknown]
  - Drug dose titration not performed [Unknown]
  - Constipation [Unknown]
  - Nausea [Unknown]
  - Oedema [Unknown]

NARRATIVE: CASE EVENT DATE: 2017
